FAERS Safety Report 4738503-2 (Version None)
Quarter: 2005Q3

REPORT INFORMATION
  Report Type: 
  Country: None (occurrence: None)
  Receive Date: 20050809
  Receipt Date: 20050802
  Transmission Date: 20060218
  Serious: Yes (Other)
  Sender: FDA-Public Use
  Company Number: US-JNJFOC-20050801184

PATIENT
  Sex: Female

DRUGS (3)
  1. TYLENOL [Suspect]
     Indication: EAR PAIN
  2. TYLENOL [Suspect]
     Indication: FACIAL PAIN
  3. TYLENOL [Suspect]

REACTIONS (1)
  - DEAFNESS [None]
